FAERS Safety Report 8661278 (Version 3)
Quarter: 2012Q4

REPORT INFORMATION
  Report Type: Spontaneous
  Country: US (occurrence: None)
  Receive Date: 20120625
  Receipt Date: 20120912
  Transmission Date: 20130627
  Serious: Yes (Disabling, Other)
  Sender: FDA-Public Use
  Company Number: ACO_30734_2012

PATIENT
  Age: 64 Year
  Sex: Male

DRUGS (2)
  1. AMPYRA [Suspect]
     Indication: PRODUCT USED FOR UNKNOWN INDICATION
     Route: 048
     Dates: start: 201112
  2. GILENYA [Concomitant]

REACTIONS (8)
  - Visual field defect [None]
  - Vision blurred [None]
  - Hypertension [None]
  - Cough [None]
  - Back pain [None]
  - Headache [None]
  - Diplopia [None]
  - Lacrimation increased [None]
